FAERS Safety Report 9618980 (Version 4)
Quarter: 2013Q4

REPORT INFORMATION
  Report Type: Report from Study
  Country: US (occurrence: US)
  Receive Date: 20131014
  Receipt Date: 20131218
  Transmission Date: 20140711
  Serious: Yes (Hospitalization)
  Sender: FDA-Public Use
  Company Number: US-IPSEN BIOPHARMACEUTICALS, INC.-2013-4445

PATIENT
  Age: 65 Year
  Sex: Male
  Weight: 142 kg

DRUGS (5)
  1. SOMATULINE DEPOT INJECTION (90MG) [Suspect]
     Indication: ACROMEGALY
     Dosage: 90 MG
     Route: 058
     Dates: start: 20130415
  2. VITAMIN B12 [Concomitant]
     Indication: PRODUCT USED FOR UNKNOWN INDICATION
     Dosage: NOT REPORTED
     Route: 065
  3. VITAMIN D3 [Concomitant]
     Indication: PRODUCT USED FOR UNKNOWN INDICATION
     Dosage: NOT REPORTED
     Route: 065
  4. ANDROGEL [Concomitant]
     Indication: PRODUCT USED FOR UNKNOWN INDICATION
     Dosage: NOT REPORTED
     Route: 061
     Dates: start: 20130829
  5. TESTOSTERONE [Concomitant]
     Indication: PRODUCT USED FOR UNKNOWN INDICATION
     Dosage: NOT REPORTED
     Route: 065

REACTIONS (10)
  - Convulsion [Recovered/Resolved]
  - Pulmonary mass [Unknown]
  - Diverticulum [Unknown]
  - Excoriation [Unknown]
  - Hepatic lesion [Unknown]
  - Cardiomegaly [Unknown]
  - Aortic aneurysm [Unknown]
  - Pulmonary hypertension [Unknown]
  - Feeling abnormal [Not Recovered/Not Resolved]
  - Cholelithiasis [Unknown]
